FAERS Safety Report 4706048-1 (Version None)
Quarter: 2005Q2

REPORT INFORMATION
  Report Type: 
  Country: None (occurrence: None)
  Receive Date: 20050627
  Receipt Date: 20040504
  Transmission Date: 20051028
  Serious: Yes (Hospitalization)
  Sender: FDA-Public Use
  Company Number: US-JNJFOC-20040103403

PATIENT
  Age: 32 Year
  Sex: Female
  Weight: 87.9978 kg

DRUGS (4)
  1. FENTANYL [Suspect]
     Indication: PAIN
     Dosage: 50 UG/HR, 1 IN 72 HOUR, TRANSDERMAL; 50 UG/HR, 1 IN 72 HOUR, TRANSDERMAL
     Route: 062
     Dates: end: 20031201
  2. FENTANYL [Suspect]
     Indication: PAIN
     Dosage: 50 UG/HR, 1 IN 72 HOUR, TRANSDERMAL; 50 UG/HR, 1 IN 72 HOUR, TRANSDERMAL
     Route: 062
     Dates: start: 20040101, end: 20040108
  3. . [Concomitant]
  4. DILAUDID [Concomitant]

REACTIONS (9)
  - ANXIETY [None]
  - APPLICATION SITE ERYTHEMA [None]
  - APPLICATION SITE PRURITUS [None]
  - DRUG WITHDRAWAL SYNDROME [None]
  - HYPERHIDROSIS [None]
  - NERVOUSNESS [None]
  - PAIN [None]
  - PANIC ATTACK [None]
  - SKIN DISCOLOURATION [None]
